FAERS Safety Report 9607252 (Version 2)
Quarter: 2013Q4

REPORT INFORMATION
  Report Type: Spontaneous
  Country: US (occurrence: US)
  Receive Date: 20131009
  Receipt Date: 20131017
  Transmission Date: 20140711
  Serious: Yes (Hospitalization)
  Sender: FDA-Public Use
  Company Number: US-BAXTER-2013BAX038730

PATIENT
  Age: 83 Year
  Sex: Male

DRUGS (4)
  1. DIANEAL LOW CALCIUM [Suspect]
     Indication: PERITONEAL DIALYSIS
     Route: 033
     Dates: start: 20120320
  2. DIANEAL LOW CALCIUM [Suspect]
     Route: 033
     Dates: start: 20120320
  3. DIANEAL LOW CALCIUM [Suspect]
     Indication: PERITONEAL DIALYSIS
     Route: 033
     Dates: start: 20120320
  4. DIANEAL LOW CALCIUM [Suspect]
     Route: 033
     Dates: start: 20120320

REACTIONS (1)
  - Cerebrovascular accident [Recovered/Resolved]
